FAERS Safety Report 8185201 (Version 5)
Quarter: 2015Q1

REPORT INFORMATION
  Report Type: Spontaneous
  Country: US (occurrence: US)
  Receive Date: 20111018
  Receipt Date: 20150203
  Transmission Date: 20150721
  Serious: Yes (Hospitalization, Other)
  Sender: FDA-Public Use
  Company Number: US-ASTRAZENECA-2011SE10858

PATIENT
  Age: 818 Month
  Sex: Female
  Weight: 106.1 kg

DRUGS (38)
  1. SYMBICORT [Suspect]
     Active Substance: BUDESONIDE\FORMOTEROL FUMARATE DIHYDRATE
     Indication: PNEUMONIA
     Dosage: 160/4.5 LESS THAN PRESCRIBED, UNKNOWN FREQUENCY
     Route: 055
     Dates: end: 201301
  2. ALBUTEROL SULFATE HFA [Concomitant]
     Dosage: AS NEEDED
     Route: 055
  3. FLONASE [Concomitant]
     Active Substance: FLUTICASONE PROPIONATE
     Route: 045
     Dates: start: 20120510
  4. SYMBICORT [Suspect]
     Active Substance: BUDESONIDE\FORMOTEROL FUMARATE DIHYDRATE
     Indication: PNEUMONIA
     Dosage: 160/4.5, TWO PUFFS TWICE DAILY
     Route: 055
     Dates: start: 201301
  5. DIOVAN [Concomitant]
     Active Substance: VALSARTAN
     Route: 048
     Dates: start: 20120519
  6. LORAZEPAM. [Concomitant]
     Active Substance: LORAZEPAM
     Route: 048
  7. SINGULAIR [Concomitant]
     Active Substance: MONTELUKAST SODIUM
     Route: 048
     Dates: start: 20120510
  8. WOMENS DAILY MULTIVITAMIN [Concomitant]
     Dosage: 18 MG- 0.4 MG- 450 MG , 1 TABLET DAILY
     Route: 048
     Dates: start: 20120509
  9. SYMBICORT [Suspect]
     Active Substance: BUDESONIDE\FORMOTEROL FUMARATE DIHYDRATE
     Indication: ASTHMA
     Dosage: 160 MCG-4.5, 2 PUFFS  TWO TIMES EVERYDAY
     Route: 055
     Dates: start: 20120509
  10. VITAMIN B COMPLEX [Concomitant]
     Active Substance: CYANOCOBALAMIN\DEXPANTHENOL\NIACINAMIDE\PYRIDOXINE HYDROCHLORIDE\RIBOFLAVIN 5^-PHOSPHATE SODIUM\THIAMINE HYDROCHLORIDE\VITAMIN B COMPLEX
     Route: 048
     Dates: start: 20120509
  11. ADALAT CC [Concomitant]
     Active Substance: NIFEDIPINE
     Route: 048
     Dates: start: 20120526
  12. ALLEGRA [Concomitant]
     Active Substance: FEXOFENADINE HYDROCHLORIDE
     Route: 048
     Dates: start: 20120705
  13. SERTRALINE HCL [Concomitant]
     Active Substance: SERTRALINE HYDROCHLORIDE
     Route: 048
     Dates: start: 20121018
  14. VITAMIN E [Concomitant]
     Active Substance: .ALPHA.-TOCOPHEROL
     Dosage: 1000 UNITS DAILY
     Route: 048
     Dates: start: 20120509
  15. SYMBICORT [Suspect]
     Active Substance: BUDESONIDE\FORMOTEROL FUMARATE DIHYDRATE
     Indication: PNEUMONIA
     Dosage: 80/4.5 MCG, UNKNOWN
     Route: 055
  16. SYMBICORT [Suspect]
     Active Substance: BUDESONIDE\FORMOTEROL FUMARATE DIHYDRATE
     Indication: ASTHMA
     Dosage: 160/4.5, TWO PUFFS TWICE DAILY
     Route: 055
     Dates: start: 201301
  17. CLONIDINE HCL [Concomitant]
     Active Substance: CLONIDINE HYDROCHLORIDE
     Route: 048
     Dates: start: 20120829
  18. LORAZEPAM. [Concomitant]
     Active Substance: LORAZEPAM
     Dosage: AS NEEDED
     Route: 048
  19. VITAMIN B12 [Concomitant]
     Active Substance: CYANOCOBALAMIN
     Route: 048
     Dates: start: 20120509
  20. OTHER INHALERS (UNSPECIFIED) [Concomitant]
  21. SYMBICORT [Suspect]
     Active Substance: BUDESONIDE\FORMOTEROL FUMARATE DIHYDRATE
     Indication: PNEUMONIA
     Dosage: 160 MCG-4.5, 2 PUFFS  TWO TIMES EVERYDAY
     Route: 055
     Dates: start: 20120509
  22. METOPROLOL SUCCINATE. [Suspect]
     Active Substance: METOPROLOL SUCCINATE
     Route: 048
     Dates: start: 20120619
  23. ALBUTEROL SULFATE HFA [Concomitant]
     Dosage: 90 MCG 2 PUFFS, EVERY 4-6 HOURS
     Route: 055
     Dates: start: 20120510
  24. PRAVASTATIN SODIUM. [Concomitant]
     Active Substance: PRAVASTATIN SODIUM
     Route: 048
     Dates: start: 20120924
  25. SPIRONOLACTONE. [Concomitant]
     Active Substance: SPIRONOLACTONE
     Route: 048
     Dates: start: 20120809
  26. VITAMIN D3 ALOE [Concomitant]
     Dosage: 120 MG- 1000 UNIT- 10 MG-400 MCG -200 MCG- 100 MCG 1 TABLET DAILY
     Route: 048
     Dates: start: 20120509
  27. XOPENEX [Concomitant]
     Active Substance: LEVALBUTEROL HYDROCHLORIDE
     Dosage: 1.25 MG/3 ML INHALE 3 ML BY NEBULISTAION ROUTE EVERY 8 HOURS
     Dates: start: 20120510
  28. SYMBICORT [Suspect]
     Active Substance: BUDESONIDE\FORMOTEROL FUMARATE DIHYDRATE
     Indication: ASTHMA
     Dosage: 160/4.5 LESS THAN PRESCRIBED, UNKNOWN FREQUENCY
     Route: 055
     Dates: end: 201301
  29. MORPHINE [Suspect]
     Active Substance: MORPHINE
     Route: 065
  30. ACETAMINOPHEN. [Suspect]
     Active Substance: ACETAMINOPHEN
     Route: 065
  31. ALLEGRA [Concomitant]
     Active Substance: FEXOFENADINE HYDROCHLORIDE
     Route: 048
  32. VITAMIN C [Concomitant]
     Active Substance: ASCORBIC ACID
     Route: 048
     Dates: start: 20120509
  33. CYMBALTA [Concomitant]
     Active Substance: DULOXETINE HYDROCHLORIDE
  34. SYMBICORT [Suspect]
     Active Substance: BUDESONIDE\FORMOTEROL FUMARATE DIHYDRATE
     Indication: ASTHMA
     Dosage: 80/4.5 MCG, UNKNOWN
     Route: 055
  35. LOW DOSE ASPIRIN EC [Concomitant]
     Route: 048
     Dates: start: 20120509
  36. DEXILANT [Concomitant]
     Active Substance: DEXLANSOPRAZOLE
     Route: 048
     Dates: start: 20120509
  37. FLEXERIL [Concomitant]
     Active Substance: CYCLOBENZAPRINE HYDROCHLORIDE
     Route: 048
     Dates: start: 20120906
  38. GABAPENTIN. [Concomitant]
     Active Substance: GABAPENTIN
     Route: 048
     Dates: start: 20121031

REACTIONS (19)
  - Pneumonia [Recovered/Resolved]
  - Renal failure [Unknown]
  - Pulmonary oedema [Unknown]
  - Asthma [Unknown]
  - Malaise [Unknown]
  - Fibromyalgia [Unknown]
  - Depression [Unknown]
  - Arthritis [Unknown]
  - Respiratory disorder [Unknown]
  - Intervertebral disc degeneration [Unknown]
  - Hypertension [Unknown]
  - Musculoskeletal pain [Unknown]
  - Bronchitis [Unknown]
  - Gait disturbance [Unknown]
  - Nausea [Unknown]
  - Foreign body [Unknown]
  - Blood pressure fluctuation [Recovered/Resolved]
  - Osteoarthritis [Unknown]
  - Off label use [Unknown]

NARRATIVE: CASE EVENT DATE: 201301
